FAERS Safety Report 18212644 (Version 1)
Quarter: 2020Q3

REPORT INFORMATION
  Report Type: Spontaneous
  Country: CA (occurrence: CA)
  Receive Date: 20200831
  Receipt Date: 20200831
  Transmission Date: 20201103
  Serious: Yes (Life-Threatening, Other)
  Sender: FDA-Public Use
  Company Number: CA-BAYER-2020-173677

PATIENT
  Age: 30 Year
  Sex: Female
  Weight: 52.1 kg

DRUGS (1)
  1. MIRENA [Suspect]
     Active Substance: LEVONORGESTREL
     Indication: CONTRACEPTION
     Dosage: 20 ?G PER DAY, CONTINUOUSLY
     Route: 015

REACTIONS (12)
  - Menstruation irregular [Recovered/Resolved]
  - Libido decreased [Recovered/Resolved]
  - Muscle spasms [Recovered/Resolved]
  - Dizziness [Recovered/Resolved]
  - Dyspareunia [Recovered/Resolved]
  - Nausea [Recovered/Resolved]
  - Acne [Recovered/Resolved]
  - Anxiety [Recovered/Resolved]
  - Neurogenic shock [Recovered/Resolved]
  - Road traffic accident [Recovered/Resolved]
  - Dysmenorrhoea [Recovered/Resolved]
  - Weight increased [Recovered/Resolved]
